FAERS Safety Report 9072739 (Version 1)
Quarter: 2013Q1

REPORT INFORMATION
  Report Type: Report from Study
  Country: US (occurrence: US)
  Receive Date: 20130129
  Receipt Date: 20130129
  Transmission Date: 20140127
  Serious: No
  Sender: FDA-Public Use
  Company Number: US-ABBOTT-12P-163-0923612-00

PATIENT
  Age: 18 None
  Sex: Female
  Weight: 99.88 kg

DRUGS (8)
  1. HUMIRA 40 MG/0.8 ML PEN [Suspect]
     Indication: PSORIASIS
     Dates: start: 20120225, end: 20120225
  2. HUMIRA 40 MG/0.8 ML PEN [Suspect]
     Indication: HIDRADENITIS
     Dates: start: 20120303
  3. DOVONEX [Concomitant]
     Indication: PSORIASIS
  4. FLUCINONIDE [Concomitant]
     Indication: PSORIASIS
  5. DERMASMOOTH SCALP OIL [Concomitant]
     Indication: PSORIASIS
  6. FLUCINONIDE [Concomitant]
     Indication: PSORIASIS
  7. CALCIPOTRIENE [Concomitant]
     Indication: PSORIASIS
  8. DOVONEX [Concomitant]
     Indication: PSORIASIS

REACTIONS (4)
  - Off label use [Not Recovered/Not Resolved]
  - Hidradenitis [Not Recovered/Not Resolved]
  - Pain [Not Recovered/Not Resolved]
  - Headache [Not Recovered/Not Resolved]
